FAERS Safety Report 9310600 (Version 1)
Quarter: 2013Q2

REPORT INFORMATION
  Report Type: Spontaneous
  Country: CO (occurrence: CO)
  Receive Date: 20130527
  Receipt Date: 20130527
  Transmission Date: 20140414
  Serious: Yes (Hospitalization, Other)
  Sender: FDA-Public Use
  Company Number: CO-PFIZER INC-2013159706

PATIENT
  Age: 83 Year
  Sex: Male

DRUGS (4)
  1. NORVAS [Suspect]
     Indication: HYPERTENSION
     Dosage: 5 MG, 1X/DAY
     Route: 048
     Dates: start: 2008, end: 201304
  2. INSULIN GLARGINE [Concomitant]
     Indication: DIABETES MELLITUS
     Dosage: 10 IU, 1X/DAY
     Route: 023
     Dates: start: 2008
  3. AMARYL [Concomitant]
     Indication: DIABETES MELLITUS
     Dosage: 2 MG, 1X/DAY
     Route: 048
     Dates: start: 2007
  4. GLUCOPHAGE [Concomitant]
     Indication: DIABETES MELLITUS
     Dosage: 500 MG, 1X/DAY
     Route: 048
     Dates: start: 2007

REACTIONS (5)
  - Respiratory disorder [Recovered/Resolved]
  - Blindness [Not Recovered/Not Resolved]
  - Diabetic foot infection [Unknown]
  - Diabetic foot [Not Recovered/Not Resolved]
  - Respiratory disorder [Unknown]
